FAERS Safety Report 8334631-3 (Version None)
Quarter: 2012Q2

REPORT INFORMATION
  Report Type: 
  Country: None (occurrence: None)
  Receive Date: 20120503
  Receipt Date: 20120423
  Transmission Date: 20120825
  Serious: Yes (Hospitalization)
  Sender: FDA-Public Use
  Company Number: US-MERCK-1110USA00940

PATIENT
  Age: 70 Year
  Sex: Female

DRUGS (4)
  1. LIPITOR [Concomitant]
     Route: 048
  2. FOSAMAX [Suspect]
     Indication: OSTEOPOROSIS
     Route: 048
     Dates: start: 19980101, end: 20090926
  3. ALENDRONATE SODIUM [Suspect]
     Route: 048
     Dates: start: 20071101, end: 20080901
  4. METFORMIN [Concomitant]
     Route: 048

REACTIONS (17)
  - FEMUR FRACTURE [None]
  - DEVICE FAILURE [None]
  - HYPERLIPIDAEMIA [None]
  - MUSCLE STRAIN [None]
  - MIXED INCONTINENCE [None]
  - HERPES ZOSTER [None]
  - CARPAL TUNNEL SYNDROME [None]
  - TYPE 2 DIABETES MELLITUS [None]
  - FRACTURE NONUNION [None]
  - FRACTURED COCCYX [None]
  - URINARY TRACT INFECTION [None]
  - FOOD ALLERGY [None]
  - FRACTURE DELAYED UNION [None]
  - BONE DISORDER [None]
  - HYPERTENSION [None]
  - FALL [None]
  - CORONARY ARTERY DISEASE [None]
